FAERS Safety Report 19734196 (Version 3)
Quarter: 2021Q3

REPORT INFORMATION
  Report Type: Spontaneous
  Country: RU (occurrence: RU)
  Receive Date: 20210824
  Receipt Date: 20210923
  Transmission Date: 20211014
  Serious: Yes (Life-Threatening, Hospitalization, Other)
  Sender: FDA-Public Use
  Company Number: RU-LUPIN PHARMACEUTICALS INC.-2021-15388

PATIENT
  Age: 28 Year
  Sex: Female
  Weight: 60 kg

DRUGS (27)
  1. HYDROXYCHLOROQUINE [Suspect]
     Active Substance: HYDROXYCHLOROQUINE
     Indication: ARTHRITIS REACTIVE
     Dosage: 200 MILLIGRAM
     Route: 065
     Dates: start: 2019
  2. METHYLPREDNISOLONE. [Suspect]
     Active Substance: METHYLPREDNISOLONE
     Dosage: 125 MILLIGRAM
     Route: 065
     Dates: start: 2019
  3. FAMOTIDINE. [Suspect]
     Active Substance: FAMOTIDINE
     Indication: STEVENS-JOHNSON SYNDROME
     Dosage: 20 MILLIGRAM
     Route: 061
     Dates: start: 2019
  4. PREDNISOLONE. [Suspect]
     Active Substance: PREDNISOLONE
     Dosage: INCREASED UP TO 5 TABLETS (5 MG) A DAY
     Route: 065
     Dates: start: 2019
  5. BYSTRUMGEL [Suspect]
     Active Substance: KETOPROFEN
     Indication: PRODUCT USED FOR UNKNOWN INDICATION
     Dosage: UNK
     Route: 065
     Dates: start: 2019
  6. CEFTRIAXONE. [Suspect]
     Active Substance: CEFTRIAXONE
     Indication: STEVENS-JOHNSON SYNDROME
     Dosage: UNK (FOR 5?7 DAYS, 0.5 PER DAY)
     Route: 042
     Dates: start: 2019
  7. DEXAMETHASONE. [Suspect]
     Active Substance: DEXAMETHASONE
     Indication: STEVENS-JOHNSON SYNDROME
     Dosage: 8 MILLIGRAM
     Route: 042
     Dates: start: 2019
  8. ALBUCID [Suspect]
     Active Substance: SULFACETAMIDE SODIUM
     Indication: STEVENS-JOHNSON SYNDROME
     Dosage: 0.25 (UNIT UNKNOWN) PER DAY
     Route: 065
     Dates: start: 2019
  9. SODIUM SULFATE [Suspect]
     Active Substance: SODIUM SULFATE
     Indication: STEVENS-JOHNSON SYNDROME
     Dosage: UNK
     Route: 047
     Dates: start: 2019
  10. DERMATOL [BISMUTH SUBGALLATE] [Suspect]
     Active Substance: BISMUTH SUBGALLATE
     Indication: LOCAL ANAESTHESIA
     Dosage: UNK
     Route: 061
     Dates: start: 2019
  11. AKRIDERM GENTA [BETAMETHASONE DIPROPIONATE/GENTAMICIN SULFATE] [Suspect]
     Active Substance: BETAMETHASONE DIPROPIONATE\GENTAMICIN SULFATE
     Indication: LOCAL ANAESTHESIA
     Dosage: 0.5 (UNIT UNKNOWN) PER DAY (CREAM)
     Route: 061
     Dates: start: 2019
  12. OMEPRAZOLE. [Suspect]
     Active Substance: OMEPRAZOLE
     Indication: ARTHRITIS REACTIVE
     Dosage: 20 MILLIGRAM
     Route: 065
     Dates: start: 20191106
  13. HYDROXYCHLOROQUINE [Suspect]
     Active Substance: HYDROXYCHLOROQUINE
     Dosage: UNK (INCREASED UP TO 2 TABLETS)
     Route: 065
     Dates: start: 20191109
  14. HYDROCORTISONE. [Suspect]
     Active Substance: HYDROCORTISONE
     Indication: STEVENS-JOHNSON SYNDROME
     Dosage: UNK (OINTMENT)
     Route: 061
     Dates: start: 2019
  15. PREDNISOLONE. [Suspect]
     Active Substance: PREDNISOLONE
     Indication: ARTHRITIS REACTIVE
     Dosage: 60 MILLIGRAM, SINGLE
     Route: 030
     Dates: start: 2019
  16. HYDROGEN PEROXIDE. [Suspect]
     Active Substance: HYDROGEN PEROXIDE
     Indication: STEVENS-JOHNSON SYNDROME
     Dosage: UNK
     Route: 065
     Dates: start: 2019
  17. DEXAMETHASONE. [Suspect]
     Active Substance: DEXAMETHASONE
     Dosage: 6 DOSAGE FORM (0.5 MG TABLET), QD
     Route: 042
     Dates: start: 2019
  18. PREDNISOLONE. [Suspect]
     Active Substance: PREDNISOLONE
     Dosage: 2 DOSAGE FORM, BID (5 MG TABLET)
     Route: 065
     Dates: start: 2019
  19. ERYTHROMYCIN. [Suspect]
     Active Substance: ERYTHROMYCIN
     Indication: STEVENS-JOHNSON SYNDROME
     Dosage: UNK (OINTMENT)
     Route: 061
     Dates: start: 2019
  20. PREDNISOLONE. [Suspect]
     Active Substance: PREDNISOLONE
     Dosage: 250 TO 500MG
     Dates: start: 2019
  21. FLUOCINOLONE ACETONIDE. [Suspect]
     Active Substance: FLUOCINOLONE ACETONIDE
     Indication: STEVENS-JOHNSON SYNDROME
     Dosage: UNK
     Route: 065
     Dates: start: 2019
  22. LEVOMEKOL [Suspect]
     Active Substance: CHLORAMPHENICOL\6-METHYLURACIL
     Indication: STEVENS-JOHNSON SYNDROME
     Dosage: UNK
     Route: 065
     Dates: start: 2019
  23. METHYLENE BLUE. [Suspect]
     Active Substance: METHYLENE BLUE
     Indication: PRODUCT USED FOR UNKNOWN INDICATION
     Dosage: UNK
     Route: 065
     Dates: start: 2019
  24. MARCAINE [Suspect]
     Active Substance: BUPIVACAINE HYDROCHLORIDE
     Indication: SPINAL ANAESTHESIA
     Dosage: 15 MILLIGRAM
     Route: 065
     Dates: start: 2019
  25. AZITHROMYCIN ANHYDROUS. [Suspect]
     Active Substance: AZITHROMYCIN ANHYDROUS
     Indication: STEVENS-JOHNSON SYNDROME
     Dosage: 500 MILLIGRAM (STRENGTH 2 PERCET)
     Route: 065
     Dates: start: 2019
  26. METHYLPREDNISOLONE. [Suspect]
     Active Substance: METHYLPREDNISOLONE
     Indication: ARTHRITIS REACTIVE
     Dosage: 250 MILLIGRAM
     Route: 065
     Dates: start: 2019
  27. CHLOROPYRAMINE [Suspect]
     Active Substance: CHLOROPYRAMINE
     Indication: STEVENS-JOHNSON SYNDROME
     Dosage: 1 MILLILITER AT NIGHT
     Route: 030
     Dates: start: 2019

REACTIONS (4)
  - Premature delivery [Unknown]
  - Exposure during pregnancy [Unknown]
  - Stevens-Johnson syndrome [Recovered/Resolved]
  - Toxic epidermal necrolysis [Recovered/Resolved]

NARRATIVE: CASE EVENT DATE: 2019
